FAERS Safety Report 10197667 (Version 1)
Quarter: 2014Q2

REPORT INFORMATION
  Report Type: Spontaneous
  Country: None (occurrence: US)
  Receive Date: 20140527
  Receipt Date: 20140527
  Transmission Date: 20141212
  Serious: No
  Sender: FDA-Public Use
  Company Number: US-NOVEN-14US008972

PATIENT
  Age: 54 Year
  Sex: Female
  Weight: 73.47 kg

DRUGS (1)
  1. MINIVELLE [Suspect]
     Indication: PRODUCT USED FOR UNKNOWN INDICATION
     Dosage: 0.075 MG/DAY, TWICE WEEKLY
     Route: 062
     Dates: start: 20131220, end: 20140219

REACTIONS (1)
  - Application site irritation [Recovered/Resolved]
